FAERS Safety Report 9357730 (Version 1)
Quarter: 2013Q2

REPORT INFORMATION
  Report Type: Spontaneous
  Country: BR (occurrence: BR)
  Receive Date: 20130620
  Receipt Date: 20130620
  Transmission Date: 20140414
  Serious: Yes (Other)
  Sender: FDA-Public Use
  Company Number: BR-PFIZER INC-2013181941

PATIENT
  Age: 64 Year
  Sex: Female
  Weight: 80 kg

DRUGS (2)
  1. CELEBRA [Suspect]
     Dosage: 200 MG, 1 CAPSULE TWICE A DAY
     Route: 048
     Dates: start: 20090614
  2. LIPITOR [Concomitant]

REACTIONS (5)
  - Spondylolisthesis [Unknown]
  - Tendonitis [Not Recovered/Not Resolved]
  - Bursitis [Not Recovered/Not Resolved]
  - Arthritis [Not Recovered/Not Resolved]
  - Dermal cyst [Not Recovered/Not Resolved]
